FAERS Safety Report 10443964 (Version 1)
Quarter: 2014Q3

REPORT INFORMATION
  Report Type: Spontaneous
  Country: US (occurrence: US)
  Receive Date: 20140910
  Receipt Date: 20140910
  Transmission Date: 20150326
  Serious: No
  Sender: FDA-Public Use
  Company Number: US-TARO-2014P1001718

PATIENT
  Age: 73 Year
  Sex: Male
  Weight: 72.58 kg

DRUGS (13)
  1. WARFARIN SODIUM TABLETS USP 5MG [Suspect]
     Active Substance: WARFARIN SODIUM
     Indication: CORONARY ARTERY BYPASS
     Route: 048
     Dates: start: 2005
  2. ASPIRIN. [Suspect]
     Active Substance: ASPIRIN
     Dosage: 81 MG
  3. RISPERIDONE. [Suspect]
     Active Substance: RISPERIDONE
     Dosage: .5 MG
  4. ATENOLOL. [Suspect]
     Active Substance: ATENOLOL
  5. VITAMIN D3 [Suspect]
     Active Substance: CHOLECALCIFEROL
  6. AMIODARONE [Suspect]
     Active Substance: AMIODARONE
  7. LISINOPRIL. [Suspect]
     Active Substance: LISINOPRIL
     Dosage: 20 MG
  8. FLUOXETINE [Suspect]
     Active Substance: FLUOXETINE\FLUOXETINE HYDROCHLORIDE
     Dosage: 20 MG
  9. NIACIN. [Suspect]
     Active Substance: NIACIN
     Dosage: 500 MG
  10. DIGOXIN. [Suspect]
     Active Substance: DIGOXIN
     Dosage: .125 MG
  11. OMEPRAZOLE. [Suspect]
     Active Substance: OMEPRAZOLE
     Dosage: 20 MG
  12. CARVEDILOL. [Suspect]
     Active Substance: CARVEDILOL
     Dosage: 25 MG, UNK
  13. ATENOLOL. [Suspect]
     Active Substance: ATENOLOL

REACTIONS (4)
  - International normalised ratio fluctuation [Unknown]
  - Dysuria [Not Recovered/Not Resolved]
  - Blood urine present [Not Recovered/Not Resolved]
  - Drug interaction [Unknown]

NARRATIVE: CASE EVENT DATE: 201401
